FAERS Safety Report 16965607 (Version 4)
Quarter: 2023Q2

REPORT INFORMATION
  Report Type: Report from Study
  Country: CA (occurrence: CA)
  Receive Date: 20191028
  Receipt Date: 20230523
  Transmission Date: 20230722
  Serious: Yes (Other)
  Sender: FDA-Public Use
  Company Number: None

PATIENT
  Age: 55 Year
  Sex: Female

DRUGS (1)
  1. GILENYA [Suspect]
     Active Substance: FINGOLIMOD HYDROCHLORIDE
     Indication: Relapsing-remitting multiple sclerosis
     Dosage: 0.5 MG, QD
     Route: 048
     Dates: start: 20151216, end: 20220310

REACTIONS (1)
  - Expanded disability status scale score increased [Not Recovered/Not Resolved]

NARRATIVE: CASE EVENT DATE: 20190228
